FAERS Safety Report 7056669-9 (Version None)
Quarter: 2010Q4

REPORT INFORMATION
  Report Type: 
  Country: None (occurrence: None)
  Receive Date: 20101021
  Receipt Date: 20101013
  Transmission Date: 20110411
  Serious: Yes (Other)
  Sender: FDA-Public Use
  Company Number: US-AMGEN GMBH-QUU405678

PATIENT

DRUGS (3)
  1. NPLATE [Suspect]
     Indication: IDIOPATHIC THROMBOCYTOPENIC PURPURA
     Dosage: 1.5 A?G/KG, UNK
     Dates: start: 20100108, end: 20100319
  2. NPLATE [Suspect]
     Dates: start: 20100108, end: 20100319
  3. CORTICOSTEROID NOS [Concomitant]

REACTIONS (3)
  - BONE MARROW RETICULIN FIBROSIS [None]
  - DRUG INEFFECTIVE [None]
  - NON-HODGKIN'S LYMPHOMA STAGE III [None]
